FAERS Safety Report 19457090 (Version 2)
Quarter: 2021Q3

REPORT INFORMATION
  Report Type: Spontaneous
  Country: AU (occurrence: AU)
  Receive Date: 20210624
  Receipt Date: 20210714
  Transmission Date: 20211014
  Serious: Yes (Other)
  Sender: FDA-Public Use
  Company Number: AU-AMGEN-AUSSP2021093941

PATIENT
  Age: 32 Year
  Sex: Female

DRUGS (1)
  1. MVASI [Suspect]
     Active Substance: BEVACIZUMAB-AWWB
     Indication: UTERINE CANCER
     Dosage: 212.5 MILLIGRAM, OVER 90 MINUTES
     Route: 065
     Dates: start: 20210615

REACTIONS (3)
  - Tachycardia [Unknown]
  - Hypertension [Unknown]
  - Transfusion [Unknown]

NARRATIVE: CASE EVENT DATE: 20210615
